FAERS Safety Report 12285694 (Version 1)
Quarter: 2016Q2

REPORT INFORMATION
  Report Type: Spontaneous
  Country: US (occurrence: US)
  Receive Date: 20160420
  Receipt Date: 20160420
  Transmission Date: 20160815
  Serious: Yes (Other)
  Sender: FDA-Public Use
  Company Number: US-CIPLA LTD.-2016US03761

PATIENT

DRUGS (1)
  1. GABAPENTIN. [Suspect]
     Active Substance: GABAPENTIN
     Indication: NEUROPATHY PERIPHERAL
     Dosage: 600 MG, TID (OCCASSIONALLY EXTRA 100 MG)
     Route: 048
     Dates: start: 2008

REACTIONS (3)
  - White blood cell count increased [Unknown]
  - Drug ineffective [Unknown]
  - Product substitution issue [Unknown]
